FAERS Safety Report 6398240-8 (Version None)
Quarter: 2009Q4

REPORT INFORMATION
  Report Type: 
  Country: None (occurrence: None)
  Receive Date: 20091013
  Receipt Date: 20091005
  Transmission Date: 20100525
  Serious: Yes (Hospitalization)
  Sender: FDA-Public Use
  Company Number: PHHO2009TW11750

PATIENT
  Sex: Male
  Weight: 41 kg

DRUGS (2)
  1. RAD 666 RAD+TAB [Suspect]
     Indication: METASTATIC RENAL CELL CARCINOMA
     Dosage: 5 MG/DAY
     Route: 048
     Dates: start: 20090722, end: 20090928
  2. AVASTIN COMP-AVA+ [Suspect]
     Indication: METASTATIC RENAL CELL CARCINOMA
     Dosage: 409 MG/DAY
     Route: 042
     Dates: start: 20090722, end: 20090929

REACTIONS (4)
  - ANAEMIA [None]
  - DYSPNOEA [None]
  - GASTROINTESTINAL HAEMORRHAGE [None]
  - MELAENA [None]
